FAERS Safety Report 12929894 (Version 1)
Quarter: 2016Q4

REPORT INFORMATION
  Report Type: Spontaneous
  Country: US (occurrence: US)
  Receive Date: 20161110
  Receipt Date: 20161110
  Transmission Date: 20170207
  Serious: Yes (Life-Threatening)
  Sender: FDA-Public Use
  Company Number: None

PATIENT
  Age: 81 Year
  Sex: Female
  Weight: 64.41 kg

DRUGS (9)
  1. SF 5000 PLUS [Suspect]
     Active Substance: SODIUM FLUORIDE
     Indication: DENTAL CARIES
     Dosage: TINY THIN RIBBON TOOTH BRUSH
     Route: 048
     Dates: start: 20161031, end: 20161101
  2. SF 5000 PLUS [Suspect]
     Active Substance: SODIUM FLUORIDE
     Indication: PROPHYLAXIS
     Dosage: TINY THIN RIBBON TOOTH BRUSH
     Route: 048
     Dates: start: 20161031, end: 20161101
  3. AMOXICILLIN. [Concomitant]
     Active Substance: AMOXICILLIN
  4. VITAMIN C [Concomitant]
     Active Substance: ASCORBIC ACID
  5. CLOPIDOGREL [Concomitant]
     Active Substance: CLOPIDOGREL BISULFATE
  6. LOVAZA [Concomitant]
     Active Substance: OMEGA-3-ACID ETHYL ESTERS
  7. METOPROLOL ER [Concomitant]
     Active Substance: METOPROLOL SUCCINATE
  8. SYNTHROID [Concomitant]
     Active Substance: LEVOTHYROXINE SODIUM
  9. VITAMIN D3 [Concomitant]
     Active Substance: CHOLECALCIFEROL

REACTIONS (2)
  - Dyspnoea [None]
  - Mouth swelling [None]

NARRATIVE: CASE EVENT DATE: 20161031
